FAERS Safety Report 4405220-8 (Version None)
Quarter: 2004Q3

REPORT INFORMATION
  Report Type: 
  Country: None (occurrence: None)
  Receive Date: 20040722
  Receipt Date: 20040722
  Transmission Date: 20050211
  Serious: No
  Sender: FDA-Public Use
  Company Number: None

PATIENT
  Age: 44 Year
  Sex: Male
  Weight: 97.5 kg

DRUGS (6)
  1. GEODON [Suspect]
  2. TRAZODONE HCL [Concomitant]
  3. ATENOLOL [Concomitant]
  4. ASPIRIN [Concomitant]
  5. . [Concomitant]
  6. . [Concomitant]

REACTIONS (3)
  - COORDINATION ABNORMAL [None]
  - DIPLOPIA [None]
  - DYSKINESIA [None]
